FAERS Safety Report 11413076 (Version 1)
Quarter: 2015Q3

REPORT INFORMATION
  Report Type: Spontaneous
  Country: US (occurrence: US)
  Receive Date: 20150821
  Receipt Date: 20150821
  Transmission Date: 20151125
  Serious: No
  Sender: FDA-Public Use
  Company Number: US-ELI_LILLY_AND_COMPANY-US201107002375

PATIENT
  Sex: Female

DRUGS (4)
  1. THYROXINE I 125 [Concomitant]
     Dosage: 125 DF, UNK
  2. HUMULIN R [Suspect]
     Active Substance: INSULIN HUMAN
     Indication: TYPE 2 DIABETES MELLITUS
     Dosage: UNK UNK, PRN
  3. HUMULIN R [Suspect]
     Active Substance: INSULIN HUMAN
     Dosage: UNK, PRN
  4. THYROXINE I 125 [Concomitant]
     Dosage: 112 DF, UNK

REACTIONS (2)
  - Alopecia [Unknown]
  - Blood glucose decreased [Unknown]
